FAERS Safety Report 25883331 (Version 1)
Quarter: 2025Q4

REPORT INFORMATION
  Report Type: Other
  Country: CA (occurrence: CA)
  Receive Date: 20251006
  Receipt Date: 20251006
  Transmission Date: 20260119
  Serious: Yes (Other)
  Sender: GLENMARK
  Company Number: CA-GLENMARK PHARMACEUTICALS-2025GMK104304

PATIENT
  Age: 60 Year
  Sex: Female

DRUGS (1)
  1. EZETIMIBE [Suspect]
     Active Substance: EZETIMIBE
     Indication: Hypercholesterolaemia
     Dosage: 10 MILLIGRAM,  1 EVERY 1 DAYS
     Route: 048

REACTIONS (2)
  - Reaction to colouring [Recovered/Resolved]
  - Reaction to excipient [Recovered/Resolved]
